FAERS Safety Report 4443674-1 (Version None)
Quarter: 2004Q3

REPORT INFORMATION
  Report Type: 
  Country: None (occurrence: None)
  Receive Date: 20040908
  Receipt Date: 20040831
  Transmission Date: 20050211
  Serious: Yes (Other)
  Sender: FDA-Public Use
  Company Number: JP-GLAXOSMITHKLINE-B0344580A

PATIENT
  Age: 74 Year
  Sex: Male

DRUGS (1)
  1. VALTREX [Suspect]
     Indication: HERPES ZOSTER
     Route: 048

REACTIONS (5)
  - DIARRHOEA [None]
  - ENCEPHALOPATHY [None]
  - GAIT DISTURBANCE [None]
  - HALLUCINATION [None]
  - RENAL FAILURE ACUTE [None]
